FAERS Safety Report 7827334-2 (Version None)
Quarter: 2011Q4

REPORT INFORMATION
  Report Type: 
  Country: None (occurrence: None)
  Receive Date: 20111020
  Receipt Date: 20111012
  Transmission Date: 20120403
  Serious: Yes (Other)
  Sender: FDA-Public Use
  Company Number: IE-PFIZER INC-2011244847

PATIENT
  Age: 63 Year
  Sex: Female

DRUGS (13)
  1. EZETIMIBE [Concomitant]
     Dosage: 1 DF, UNK
     Route: 048
  2. GLUCOSAMINE [Concomitant]
     Dosage: 500 MG, 3X/DAY
     Route: 048
  3. DIAZEPAM [Concomitant]
     Dosage: 2 MG, 2X/DAY
     Route: 048
  4. LEVOTHYROXINE SODIUM [Concomitant]
     Dosage: 75 UNK, UNK
     Route: 048
  5. SIMVASTATIN [Concomitant]
     Dosage: 1 DF, UNK
     Route: 048
  6. LEXAPRO [Concomitant]
     Dosage: UNK
     Route: 048
  7. TOVIAZ [Suspect]
     Indication: HYPERTONIC BLADDER
     Dosage: 4 MG, UNK
     Route: 048
     Dates: start: 20110907, end: 20110910
  8. LEVOTHYROXINE SODIUM [Concomitant]
     Dosage: 100 UNK, UNK
     Route: 048
  9. VENTOLIN [Concomitant]
     Dosage: 2 DF, 4X/DAY
  10. ALLOPURINOL [Concomitant]
     Dosage: 200 MG, 1X/DAY
     Route: 048
  11. BECLOMETHASONE DIPROPIONATE [Concomitant]
     Dosage: 2 DF, 2X/DAY
  12. MOVIPREP [Concomitant]
     Dosage: 1 DF, AS NEEDED
  13. EFFEXOR [Concomitant]
     Dosage: 112.5 MG, 1X/DAY
     Route: 048

REACTIONS (1)
  - ASTHMA [None]
